FAERS Safety Report 21578498 (Version 1)
Quarter: 2022Q4

REPORT INFORMATION
  Report Type: Report from Study
  Country: US (occurrence: US)
  Receive Date: 20221110
  Receipt Date: 20221110
  Transmission Date: 20230113
  Serious: Yes (Other)
  Sender: FDA-Public Use
  Company Number: US-ABBVIE-4194244

PATIENT
  Age: 78 Year
  Sex: Male

DRUGS (1)
  1. IMBRUVICA [Suspect]
     Active Substance: IBRUTINIB
     Indication: Waldenstrom^s macroglobulinaemia
     Dosage: FORM STRENGTH 280 MG
     Route: 048
     Dates: start: 201909

REACTIONS (3)
  - Retinal oedema [Unknown]
  - Contusion [Recovering/Resolving]
  - Retinal artery occlusion [Unknown]

NARRATIVE: CASE EVENT DATE: 20220101
